FAERS Safety Report 13796930 (Version 2)
Quarter: 2017Q3

REPORT INFORMATION
  Report Type: Spontaneous
  Country: US (occurrence: US)
  Receive Date: 20170726
  Receipt Date: 20170816
  Transmission Date: 20171127
  Serious: Yes (Death, Hospitalization, Other)
  Sender: FDA-Public Use
  Company Number: US-BAXTER-2017BAX028789

PATIENT
  Age: 80 Year
  Sex: Male

DRUGS (14)
  1. CODEINE [Concomitant]
     Active Substance: CODEINE
     Indication: PROCEDURAL PAIN
     Dosage: PRN
     Route: 065
  2. LIDOCAINE. [Concomitant]
     Active Substance: LIDOCAINE
     Indication: LOCAL ANAESTHESIA
     Dosage: 72 MILLIGRAM
     Route: 065
  3. FLUCONAZOLE INJECTION, USP [Suspect]
     Active Substance: FLUCONAZOLE
     Indication: CANDIDA INFECTION
     Route: 065
  4. WARFARIN [Suspect]
     Active Substance: WARFARIN
     Indication: ATRIAL FIBRILLATION
     Dosage: ONCE DAILY
     Route: 065
  5. MECLIZINE [Concomitant]
     Active Substance: MECLIZINE HYDROCHLORIDE
     Indication: VERTIGO
     Route: 065
  6. LORAZEPAM. [Concomitant]
     Active Substance: LORAZEPAM
     Indication: ANXIETY
     Dosage: PRN
     Route: 065
  7. GEMFIBROZIL. [Concomitant]
     Active Substance: GEMFIBROZIL
     Indication: HYPERCHOLESTEROLAEMIA
     Route: 065
  8. ACETYLSALICYLIC ACID [Concomitant]
     Active Substance: ASPIRIN
     Indication: CARDIOVASCULAR EVENT PROPHYLAXIS
     Route: 065
  9. SIMVASTATIN. [Concomitant]
     Active Substance: SIMVASTATIN
     Indication: HYPERCHOLESTEROLAEMIA
     Dosage: ONCE DAILY
     Route: 065
  10. NITROGLYCERIN. [Concomitant]
     Active Substance: NITROGLYCERIN
     Indication: ANGINA PECTORIS
     Dosage: PRN
     Route: 060
  11. MEPIVACAINE [Concomitant]
     Active Substance: MEPIVACAINE\MEPIVACAINE HYDROCHLORIDE
     Indication: LOCAL ANAESTHESIA
     Dosage: 54 MILLIGRAM
     Route: 065
  12. ACETAMINOPHEN. [Concomitant]
     Active Substance: ACETAMINOPHEN
     Indication: PROCEDURAL PAIN
     Route: 065
  13. ISOSORBIDE MONONITRATE. [Concomitant]
     Active Substance: ISOSORBIDE MONONITRATE
     Indication: ANGINA PECTORIS
     Route: 065
  14. EPINEPHRINE. [Concomitant]
     Active Substance: EPINEPHRINE
     Indication: LOCAL ANAESTHESIA
     Dosage: 1:100,000
     Route: 065

REACTIONS (2)
  - Drug interaction [Not Recovered/Not Resolved]
  - Haemorrhagic stroke [Fatal]
